FAERS Safety Report 12310811 (Version 4)
Quarter: 2016Q4

REPORT INFORMATION
  Report Type: Report from Study
  Country: SG (occurrence: SG)
  Receive Date: 20160427
  Receipt Date: 20161026
  Transmission Date: 20170207
  Serious: Yes (Hospitalization, Other)
  Sender: FDA-Public Use
  Company Number: PHHY2013SG067491

PATIENT
  Age: 61 Year
  Sex: Female

DRUGS (1)
  1. GLIVEC [Suspect]
     Active Substance: IMATINIB MESYLATE
     Indication: CHRONIC MYELOID LEUKAEMIA
     Dosage: 600 MG, QD
     Route: 065
     Dates: start: 20110117, end: 20160915

REACTIONS (6)
  - Nausea [Unknown]
  - Vomiting [Unknown]
  - Cardiovascular disorder [Unknown]
  - Dizziness [Unknown]
  - Renal disorder [Unknown]
  - Tuberculosis [Unknown]

NARRATIVE: CASE EVENT DATE: 20130529
